FAERS Safety Report 6631449-4 (Version None)
Quarter: 2010Q1

REPORT INFORMATION
  Report Type: 
  Country: None (occurrence: None)
  Receive Date: 20100311
  Receipt Date: 20100311
  Transmission Date: 20100710
  Serious: Yes (Disabling)
  Sender: FDA-Public Use
  Company Number: None

PATIENT
  Age: 67 Year
  Sex: Female
  Weight: 52.1637 kg

DRUGS (2)
  1. LEVAQUIN [Suspect]
     Indication: POST PROCEDURAL INFECTION
     Dosage: 1 DAILY PO
     Route: 048
     Dates: start: 20100127, end: 20100211
  2. LEVAQUIN [Suspect]
     Indication: SURGERY
     Dosage: ? ? IV DRIP
     Route: 041
     Dates: start: 20100212, end: 20100212

REACTIONS (1)
  - TENDON RUPTURE [None]
